FAERS Safety Report 5924421-0 (Version None)
Quarter: 2008Q4

REPORT INFORMATION
  Report Type: 
  Country: None (occurrence: None)
  Receive Date: 20081020
  Receipt Date: 20081013
  Transmission Date: 20090506
  Serious: Yes (Death, Hospitalization, Other)
  Sender: FDA-Public Use
  Company Number: CH-WYE-G01678808

PATIENT
  Age: 54 Year
  Sex: Male
  Weight: 63 kg

DRUGS (1)
  1. BENEFIX [Suspect]
     Indication: FACTOR IX DEFICIENCY
     Dosage: 1 DOSE EVERY 1 PRN
     Dates: end: 20080915

REACTIONS (6)
  - ANAEMIA [None]
  - CONCOMITANT DISEASE PROGRESSION [None]
  - HYDROCEPHALUS [None]
  - LEUKOPENIA [None]
  - NEUROLOGICAL SYMPTOM [None]
  - NON-SMALL CELL LUNG CANCER METASTATIC [None]
